FAERS Safety Report 17870642 (Version 1)
Quarter: 2020Q2

REPORT INFORMATION
  Report Type: Spontaneous
  Country: JP (occurrence: JP)
  Receive Date: 20200608
  Receipt Date: 20200608
  Transmission Date: 20200714
  Serious: Yes (Other)
  Sender: FDA-Public Use
  Company Number: JP-LUPIN PHARMACEUTICALS INC.-2020-02579

PATIENT
  Age: 83 Year
  Sex: Female

DRUGS (6)
  1. AZACITIDINE. [Suspect]
     Active Substance: AZACITIDINE
     Indication: MYELODYSPLASTIC SYNDROME
     Dosage: 75 MILLIGRAM/SQ. METER, QD
     Route: 058
  2. RAMOSETRON HCL [Suspect]
     Active Substance: RAMOSETRON HYDROCHLORIDE
     Indication: MYELODYSPLASTIC SYNDROME
     Dosage: UNK
     Route: 065
  3. FLUCONAZOLE. [Concomitant]
     Active Substance: FLUCONAZOLE
     Indication: PRODUCT USED FOR UNKNOWN INDICATION
     Dosage: UNK
     Route: 065
  4. FAROPENEM SODIUM [Concomitant]
     Active Substance: FAROPENEM SODIUM
     Indication: PRODUCT USED FOR UNKNOWN INDICATION
     Dosage: UNK
     Route: 065
  5. ROSUVASTATIN. [Concomitant]
     Active Substance: ROSUVASTATIN
     Indication: PRODUCT USED FOR UNKNOWN INDICATION
     Dosage: UNK
     Route: 065
  6. LANSOPRAZOLE. [Concomitant]
     Active Substance: LANSOPRAZOLE
     Indication: PRODUCT USED FOR UNKNOWN INDICATION
     Dosage: UNK
     Route: 065

REACTIONS (4)
  - Intestinal ulcer [Recovered/Resolved]
  - Haematochezia [Recovered/Resolved]
  - Enterocolitis haemorrhagic [Recovered/Resolved]
  - Bone marrow failure [Unknown]
